FAERS Safety Report 6741918-4 (Version None)
Quarter: 2010Q2

REPORT INFORMATION
  Report Type: 
  Country: None (occurrence: None)
  Receive Date: 20100526
  Receipt Date: 20100521
  Transmission Date: 20101027
  Serious: Yes (Death)
  Sender: FDA-Public Use
  Company Number: A0861328A

PATIENT
  Age: 86 Year
  Sex: Male

DRUGS (2)
  1. ELTROMBOPAG [Suspect]
     Indication: THROMBOCYTOPENIA
     Route: 048
     Dates: start: 20090410, end: 20090410
  2. CORTICOSTEROIDS [Concomitant]
     Dates: start: 20090308

REACTIONS (2)
  - SARCOMA [None]
  - TREATMENT NONCOMPLIANCE [None]
